FAERS Safety Report 6115520-1 (Version None)
Quarter: 2009Q1

REPORT INFORMATION
  Report Type: 
  Country: None (occurrence: None)
  Receive Date: 20090313
  Receipt Date: 20090306
  Transmission Date: 20090719
  Serious: Yes (Life-Threatening)
  Sender: FDA-Public Use
  Company Number: IT-ROCHE-619313

PATIENT
  Sex: Female

DRUGS (7)
  1. ROCEPHIN [Suspect]
     Indication: BRONCHITIS
     Route: 030
     Dates: start: 20090303, end: 20090303
  2. BENTELAN [Suspect]
     Indication: BRONCHITIS
     Route: 030
     Dates: start: 20090303, end: 20090303
  3. TRIATEC [Concomitant]
     Dosage: FREQUENCY REPORTED AS UNKNOWN. ROUTE REPORTED AS OS
     Route: 048
     Dates: start: 20081001
  4. NORVASC [Concomitant]
     Dosage: FREQUENCY WAS UNKNOWN. ROUTE REPORTED AS OS
     Route: 048
     Dates: start: 20081001
  5. ASPIRIN [Concomitant]
     Dosage: FREQUENCY WAS UNKNOWN. ROUTE REPORTED AS OS
     Route: 048
     Dates: start: 20081001
  6. LASIX [Concomitant]
     Dosage: FREQUENCY WAS UNKNOWN. ROUTE REPORTED AS OS
     Route: 048
     Dates: start: 20081001
  7. SELES BETA [Concomitant]
     Dosage: FREQUENCY WAS UNKNOWN.  START DATE REPORTED AS ATENOLOL. ROUTE REPORTED AS OS
     Route: 048

REACTIONS (5)
  - CONTUSION [None]
  - HEAD INJURY [None]
  - INJURY [None]
  - SYNCOPE [None]
  - URTICARIA [None]
